FAERS Safety Report 8555617-X (Version None)
Quarter: 2012Q3

REPORT INFORMATION
  Report Type: 
  Country: None (occurrence: None)
  Receive Date: 20120731
  Receipt Date: 20110510
  Transmission Date: 20120928
  Serious: No
  Sender: FDA-Public Use
  Company Number: US-ASTRAZENECA-2010SE52175

PATIENT
  Age: 53 Year
  Sex: Female
  Weight: 112.9 kg

DRUGS (10)
  1. THYROID MED [Concomitant]
  2. METOPROLOL TARTRATE [Concomitant]
  3. CYCLOBENZAPRINE [Concomitant]
  4. HYDROCODONE [Concomitant]
  5. LORAZEPAM [Concomitant]
  6. SEROQUEL XR [Suspect]
     Route: 048
     Dates: start: 20100901
  7. VENTOLIN [Concomitant]
  8. SEROQUEL XR [Suspect]
     Indication: BIPOLAR DISORDER
     Route: 048
     Dates: start: 20100301, end: 20101030
  9. BP MED [Concomitant]
  10. ADVAIR [Concomitant]

REACTIONS (5)
  - BURNOUT SYNDROME [None]
  - INSOMNIA [None]
  - TACHYPHRENIA [None]
  - MOOD ALTERED [None]
  - DRUG DOSE OMISSION [None]
